FAERS Safety Report 13873133 (Version 2)
Quarter: 2017Q3

REPORT INFORMATION
  Report Type: Spontaneous
  Country: JP (occurrence: JP)
  Receive Date: 20170816
  Receipt Date: 20170918
  Transmission Date: 20171127
  Serious: Yes (Hospitalization)
  Sender: FDA-Public Use
  Company Number: PHHY2017JP119820

PATIENT
  Age: 59 Year
  Sex: Male

DRUGS (3)
  1. FAMVIR [Suspect]
     Active Substance: FAMCICLOVIR
     Indication: HERPES ZOSTER
     Dosage: 500 MG, TID
     Route: 048
     Dates: start: 20170805, end: 20170808
  2. CALONAL [Concomitant]
     Active Substance: ACETAMINOPHEN
     Dosage: 900 MG, UNK
     Route: 048
     Dates: start: 20170805, end: 20170808
  3. METHYCOBAL [Concomitant]
     Active Substance: METHYLCOBALAMIN
     Indication: PRODUCT USED FOR UNKNOWN INDICATION
     Dosage: 750 UG, UNK
     Route: 048
     Dates: start: 20170805, end: 20170808

REACTIONS (1)
  - Dyspnoea [Recovering/Resolving]

NARRATIVE: CASE EVENT DATE: 20170808
